FAERS Safety Report 8837584 (Version 1)
Quarter: 2012Q4

REPORT INFORMATION
  Report Type: 
  Country: US (occurrence: US)
  Receive Date: 20121012
  Receipt Date: 20121012
  Transmission Date: 20130627
  Serious: Yes (Disabling)
  Sender: FDA-Public Use
  Company Number: US-JNJFOC-20121002976

PATIENT
  Sex: Female
  Weight: 65.77 kg

DRUGS (5)
  1. TOPAMAX [Suspect]
     Indication: MIGRAINE PROPHYLAXIS
     Route: 048
  2. TOPAMAX [Suspect]
     Indication: MIGRAINE PROPHYLAXIS
     Route: 048
     Dates: start: 2006
  3. LYRICA [Suspect]
     Indication: MULTIPLE SCLEROSIS
     Route: 065
     Dates: start: 2007
  4. LYRICA [Suspect]
     Indication: NEURALGIA
     Route: 065
     Dates: start: 2007
  5. CELEBREX [Suspect]
     Indication: ARTHRALGIA
     Route: 065
     Dates: start: 2007

REACTIONS (7)
  - Memory impairment [Recovering/Resolving]
  - Disability [Not Recovered/Not Resolved]
  - Fatigue [Not Recovered/Not Resolved]
  - Arthralgia [Not Recovered/Not Resolved]
  - Disturbance in attention [Recovering/Resolving]
  - Confusional state [Not Recovered/Not Resolved]
  - Headache [Unknown]
